FAERS Safety Report 24583890 (Version 2)
Quarter: 2024Q4

REPORT INFORMATION
  Report Type: Spontaneous
  Country: GB (occurrence: GB)
  Receive Date: 20241106
  Receipt Date: 20241120
  Transmission Date: 20250115
  Serious: Yes (Other)
  Sender: RANBAXY
  Company Number: GB-SUN PHARMACEUTICAL INDUSTRIES LTD-2024R1-477349

PATIENT
  Age: 7 Decade
  Sex: Female

DRUGS (3)
  1. ACETAMINOPHEN [Suspect]
     Active Substance: ACETAMINOPHEN
     Indication: Rhinitis
     Dosage: UNK
     Route: 065
  2. GUAIFENESIN [Suspect]
     Active Substance: GUAIFENESIN
     Indication: Rhinitis
     Dosage: UNK
     Route: 065
  3. PHENYLEPHRINE [Suspect]
     Active Substance: PHENYLEPHRINE
     Indication: Rhinitis
     Dosage: UNK
     Route: 065

REACTIONS (1)
  - Angle closure glaucoma [Unknown]
